FAERS Safety Report 9738828 (Version 1)
Quarter: 2013Q4

REPORT INFORMATION
  Report Type: Spontaneous
  Country: US (occurrence: US)
  Receive Date: 20131209
  Receipt Date: 20131209
  Transmission Date: 20140711
  Serious: No
  Sender: FDA-Public Use
  Company Number: US-PFIZER INC-2013349692

PATIENT
  Age: 37 Year
  Sex: Female
  Weight: 94.79 kg

DRUGS (2)
  1. PRISTIQ [Suspect]
     Dosage: 50 MG, 1X/DAY
     Dates: end: 2013
  2. LYRICA [Suspect]
     Indication: NEUROPATHY PERIPHERAL
     Dosage: 300 MG, 1X/DAY

REACTIONS (4)
  - Neuropathy peripheral [Not Recovered/Not Resolved]
  - Agitation [Unknown]
  - Activities of daily living impaired [Not Recovered/Not Resolved]
  - Dysgraphia [Not Recovered/Not Resolved]
